FAERS Safety Report 25335546 (Version 1)
Quarter: 2025Q2

REPORT INFORMATION
  Report Type: Spontaneous
  Country: US (occurrence: US)
  Receive Date: 20250520
  Receipt Date: 20250520
  Transmission Date: 20250717
  Serious: Yes (Other)
  Sender: ALIMERA
  Company Number: US-ALIMERA SCIENCES INC.-US-A16013-25-000163

PATIENT

DRUGS (1)
  1. YUTIQ [Suspect]
     Active Substance: FLUOCINOLONE ACETONIDE
     Indication: Exudative retinopathy
     Route: 031

REACTIONS (8)
  - Ocular hypertension [Unknown]
  - Optic neuropathy [Unknown]
  - Metastases to liver [Unknown]
  - Radiation retinopathy [Unknown]
  - Glaucoma [Unknown]
  - Cataract [Unknown]
  - Cataract operation [Unknown]
  - Off label use [Unknown]
